FAERS Safety Report 20970276 (Version 1)
Quarter: 2022Q2

REPORT INFORMATION
  Report Type: Spontaneous
  Country: US (occurrence: US)
  Receive Date: 20220616
  Receipt Date: 20220616
  Transmission Date: 20220721
  Serious: Yes (Other)
  Sender: FDA-Public Use
  Company Number: US-SA-SAC20220603001851

PATIENT
  Sex: Female

DRUGS (13)
  1. AUBAGIO [Suspect]
     Active Substance: TERIFLUNOMIDE
     Indication: Multiple sclerosis
     Dosage: 14 MG, QD
     Route: 048
     Dates: start: 202008
  2. VITAMINS [Concomitant]
     Active Substance: VITAMINS
     Dosage: 0125MG
  3. CLONAZEPAM [Concomitant]
     Active Substance: CLONAZEPAM
  4. DORZOLAMIDE/TIMOLOL ACTAVIS [Concomitant]
     Dosage: 0125MG
  5. LATANOPROST [Concomitant]
     Active Substance: LATANOPROST
     Dosage: 18MG
  6. IRON [Concomitant]
     Active Substance: IRON
     Dosage: 25MG
  7. MYRBETRIQ [Concomitant]
     Active Substance: MIRABEGRON
     Dosage: 18MG
  8. NITROFURANTOIN [Concomitant]
     Active Substance: NITROFURANTOIN
     Dosage: 25MG
  9. CALCIUM [Concomitant]
     Active Substance: CALCIUM
     Dosage: 600MG
  10. COMBIGAN [Concomitant]
     Active Substance: BRIMONIDINE TARTRATE\TIMOLOL MALEATE
     Dosage: 10MG
  11. NORCO [Concomitant]
     Active Substance: ACETAMINOPHEN\HYDROCODONE BITARTRATE
  12. PROHEP [Concomitant]
     Dosage: 100MG
  13. COZAAR [Concomitant]
     Active Substance: LOSARTAN POTASSIUM

REACTIONS (1)
  - Cystitis [Unknown]
